FAERS Safety Report 12508017 (Version 1)
Quarter: 2016Q2

REPORT INFORMATION
  Report Type: Spontaneous
  Country: IN (occurrence: IN)
  Receive Date: 20160629
  Receipt Date: 20160629
  Transmission Date: 20160815
  Serious: Yes (Hospitalization)
  Sender: FDA-Public Use
  Company Number: IN-MYLANLABS-2016M1026634

PATIENT

DRUGS (2)
  1. CALCITRIOL. [Suspect]
     Active Substance: CALCITRIOL
     Indication: HYPOPARATHYROIDISM
     Dosage: 8 INTRAMUSCULAR INJECTIONS; WEEKLY (6,00,000 UNITS EACH, IN PAST 3 MONTHS)
     Route: 030
  2. CALCIUM CARBONATE. [Suspect]
     Active Substance: CALCIUM CARBONATE
     Indication: HYPOPARATHYROIDISM
     Dosage: 3 TABLETS OF 500 MG DAILY
     Route: 048

REACTIONS (4)
  - Milk-alkali syndrome [Recovered/Resolved]
  - Toxicity to various agents [Not Recovered/Not Resolved]
  - Hypercalcaemia [Recovered/Resolved]
  - Weight decreased [Recovering/Resolving]
